FAERS Safety Report 6541728-7 (Version None)
Quarter: 2010Q1

REPORT INFORMATION
  Report Type: 
  Country: None (occurrence: None)
  Receive Date: 20100119
  Receipt Date: 20100115
  Transmission Date: 20100710
  Serious: Yes (Death)
  Sender: FDA-Public Use
  Company Number: US-ELI_LILLY_AND_COMPANY-US201001003064

PATIENT
  Sex: Male

DRUGS (1)
  1. GEMZAR [Suspect]
     Dates: start: 20091028

REACTIONS (1)
  - DEATH [None]
